FAERS Safety Report 15075562 (Version 1)
Quarter: 2018Q2

REPORT INFORMATION
  Report Type: Report from Study
  Country: None (occurrence: CO)
  Receive Date: 20180627
  Receipt Date: 20180627
  Transmission Date: 20180711
  Serious: Yes (Other)
  Sender: FDA-Public Use
  Company Number: CO-ABBVIE-18K-036-2401203-00

PATIENT
  Age: 14 Year
  Sex: Male
  Weight: 58 kg

DRUGS (2)
  1. METHOTREXATE (METHOTREXATE SODIUM) [Concomitant]
     Active Substance: METHOTREXATE SODIUM
     Indication: PRODUCT USED FOR UNKNOWN INDICATION
  2. HUMIRA [Suspect]
     Active Substance: ADALIMUMAB
     Indication: JUVENILE IDIOPATHIC ARTHRITIS
     Dosage: PEDIATRIC VIAL
     Route: 058
     Dates: start: 20151229

REACTIONS (2)
  - Muscular weakness [Recovering/Resolving]
  - Brain neoplasm benign [Recovering/Resolving]

NARRATIVE: CASE EVENT DATE: 201801
